FAERS Safety Report 20236867 (Version 1)
Quarter: 2021Q4

REPORT INFORMATION
  Report Type: Spontaneous
  Country: CN (occurrence: CN)
  Receive Date: 20211228
  Receipt Date: 20211228
  Transmission Date: 20220303
  Serious: Yes (Hospitalization)
  Sender: FDA-Public Use
  Company Number: CN-GLAXOSMITHKLINE-CN2021APC260813

PATIENT
  Sex: Male

DRUGS (3)
  1. BENLYSTA [Suspect]
     Active Substance: BELIMUMAB
     Indication: Immunosuppression
     Dosage: 360 MG, Z, MONTHLY
     Route: 042
     Dates: start: 20210623, end: 20211216
  2. PREDNISONE ACETATE [Suspect]
     Active Substance: PREDNISONE ACETATE
     Indication: Inflammation
     Dosage: 15 MG, QD
     Route: 048
     Dates: start: 20211012, end: 20211119
  3. CYCLOPHOSPHAMIDE [Suspect]
     Active Substance: CYCLOPHOSPHAMIDE
     Indication: Immunosuppression
     Dosage: 0.8 G, Z, MONTHLY
     Dates: start: 20210622, end: 20211117

REACTIONS (6)
  - Eye infection [Recovering/Resolving]
  - Lacrimation increased [Recovering/Resolving]
  - Eye swelling [Recovering/Resolving]
  - Ocular discomfort [Recovering/Resolving]
  - Trichiasis [Recovering/Resolving]
  - Pyrexia [Recovering/Resolving]

NARRATIVE: CASE EVENT DATE: 20211118
